FAERS Safety Report 4977395-3 (Version None)
Quarter: 2006Q2

REPORT INFORMATION
  Report Type: 
  Country: None (occurrence: None)
  Receive Date: 20060413
  Receipt Date: 20060404
  Transmission Date: 20061013
  Serious: Yes (Death)
  Sender: FDA-Public Use
  Company Number: GXKR2006TR01927

PATIENT
  Age: 45 Year
  Sex: Female

DRUGS (3)
  1. PACLITAXEL [Suspect]
     Indication: OVARIAN EPITHELIAL CANCER
  2. CARBOPLATIN [Suspect]
     Indication: OVARIAN EPITHELIAL CANCER
  3. FAMOTIDINE [Concomitant]

REACTIONS (3)
  - EMPYEMA [None]
  - PNEUMONIA [None]
  - SEPTIC SHOCK [None]
